FAERS Safety Report 21931198 (Version 1)
Quarter: 2023Q1

REPORT INFORMATION
  Report Type: Spontaneous
  Country: US (occurrence: None)
  Receive Date: 20230130
  Receipt Date: 20230130
  Transmission Date: 20230418
  Serious: No
  Sender: FDA-Public Use
  Company Number: None

PATIENT
  Age: 61 Year
  Sex: Female

DRUGS (1)
  1. EVEROLIMUS [Suspect]
     Active Substance: EVEROLIMUS
     Indication: Soft tissue sarcoma
     Dosage: FREQUENCY : DAILY;?
     Route: 048
     Dates: start: 202209

REACTIONS (6)
  - Tooth extraction [None]
  - Pruritus [None]
  - Vomiting [None]
  - Diarrhoea [None]
  - Discomfort [None]
  - Pain [None]

NARRATIVE: CASE EVENT DATE: 20230123
